FAERS Safety Report 10039278 (Version 1)
Quarter: 2014Q1

REPORT INFORMATION
  Report Type: Spontaneous
  Country: FR (occurrence: FR)
  Receive Date: 20140326
  Receipt Date: 20140326
  Transmission Date: 20141002
  Serious: Yes (Hospitalization)
  Sender: FDA-Public Use
  Company Number: FR-PFIZER INC-2014081370

PATIENT
  Age: 82 Year
  Sex: Male

DRUGS (8)
  1. TAZOCILLINE [Suspect]
     Indication: GROIN ABSCESS
     Dosage: 4 G, 3X/DAY
     Route: 042
     Dates: start: 20140111, end: 20140203
  2. CARDENSIEL [Concomitant]
  3. PREVISCAN [Concomitant]
  4. LASILIX [Concomitant]
  5. SIMVASTATIN [Concomitant]
  6. ZYLORIC [Concomitant]
  7. TARDYFERON [Concomitant]
  8. CACIT [Concomitant]

REACTIONS (4)
  - Drug eruption [Recovering/Resolving]
  - Eosinophilia [Recovering/Resolving]
  - Oedema [Recovering/Resolving]
  - Pyrexia [Recovered/Resolved]
